FAERS Safety Report 25523719 (Version 1)
Quarter: 2025Q3

REPORT INFORMATION
  Report Type: Spontaneous
  Country: BR (occurrence: BR)
  Receive Date: 20250707
  Receipt Date: 20250707
  Transmission Date: 20251020
  Serious: Yes (Other)
  Sender: NOVO NORDISK
  Company Number: BR-NOVOPROD-1428109

PATIENT
  Sex: Female
  Weight: 82 kg

DRUGS (14)
  1. RYBELSUS [Suspect]
     Active Substance: SEMAGLUTIDE
     Indication: Type 2 diabetes mellitus
     Dosage: 14 MG, QD(ABOUT 6 MOTHS AGO)
     Route: 048
     Dates: start: 2024
  2. OMEPRAZOLE [Concomitant]
     Active Substance: OMEPRAZOLE
     Indication: Type 2 diabetes mellitus
  3. OLMESARTAN [Concomitant]
     Active Substance: OLMESARTAN
  4. AMLODIPINE [Concomitant]
     Active Substance: AMLODIPINE BESYLATE
  5. VITAMIN D NOS [Concomitant]
     Active Substance: CHOLECALCIFEROL\ERGOCALCIFEROL
     Indication: Osteopenia
     Dosage: 7000 IU, QW
  6. ATENOLOL [Concomitant]
     Active Substance: ATENOLOL
  7. DULOXETINE [Concomitant]
     Active Substance: DULOXETINE
  8. DIACEREIN [Concomitant]
     Active Substance: DIACEREIN
  9. ROSUVASTATIN [Concomitant]
     Active Substance: ROSUVASTATIN
  10. PREGABALIN [Concomitant]
     Active Substance: PREGABALIN
  11. METFORMIN [Concomitant]
     Active Substance: METFORMIN HYDROCHLORIDE
  12. SYSTEM [Concomitant]
     Dosage: 50 ?G, QW
  13. CALCIUM [Concomitant]
     Active Substance: CALCIUM
     Indication: Osteopenia
  14. OZEMPIC [Suspect]
     Active Substance: SEMAGLUTIDE
     Indication: Type 2 diabetes mellitus

REACTIONS (3)
  - Carpal tunnel syndrome [Unknown]
  - Periarthritis [Unknown]
  - Ulnar nerve injury [Unknown]
